FAERS Safety Report 18774923 (Version 1)
Quarter: 2021Q1

REPORT INFORMATION
  Report Type: Report from Study
  Country: IT (occurrence: IT)
  Receive Date: 20210122
  Receipt Date: 20210122
  Transmission Date: 20210419
  Serious: Yes (Death)
  Sender: FDA-Public Use
  Company Number: IT-PURDUE-USA-2021-0199425

PATIENT
  Age: 42 Year
  Sex: Female

DRUGS (4)
  1. MORPHINE SULFATE (SIMILAR TO NDA 19?516) [Suspect]
     Active Substance: MORPHINE SULFATE
     Indication: PRODUCT USED FOR UNKNOWN INDICATION
     Dosage: UNK (ADDITIONAL INFO: S?MORPHINE?CNS?OPIOID)
     Route: 065
  2. DIAZEPAM. [Suspect]
     Active Substance: DIAZEPAM
     Indication: PRODUCT USED FOR UNKNOWN INDICATION
     Dosage: UNK (ADDITIONAL INFO: S?DIAZEPAM?CNS?BENZODIAZEPINE)
     Route: 065
  3. SUBUTEX [Suspect]
     Active Substance: BUPRENORPHINE HYDROCHLORIDE
     Indication: PAIN
     Dosage: UNK
     Route: 065
  4. TRAMADOL HYDROCHLORIDE. [Suspect]
     Active Substance: TRAMADOL HYDROCHLORIDE
     Indication: PRODUCT USED FOR UNKNOWN INDICATION
     Dosage: UNK (ADDITIONAL INFO: S?TRAMADOL?CNS?OPIOID)
     Route: 065

REACTIONS (5)
  - Toxicity to various agents [Fatal]
  - Sleep deficit [Fatal]
  - Dizziness [Fatal]
  - Accidental overdose [Fatal]
  - Off label use [Fatal]

NARRATIVE: CASE EVENT DATE: 2018
